FAERS Safety Report 6501617-0 (Version None)
Quarter: 2009Q4

REPORT INFORMATION
  Report Type: 
  Country: None (occurrence: None)
  Receive Date: 20091216
  Receipt Date: 20091207
  Transmission Date: 20100525
  Serious: Yes (Other)
  Sender: FDA-Public Use
  Company Number: JP-MERCK-0912USA00776

PATIENT
  Age: 23 Year
  Sex: Male
  Weight: 43 kg

DRUGS (13)
  1. PEPCID [Suspect]
     Indication: ODYNOPHAGIA
     Route: 042
     Dates: start: 20091124, end: 20091124
  2. SEFIROM [Concomitant]
     Route: 065
     Dates: start: 20091119, end: 20091124
  3. CLINDAMYCIN PHOSPHATE [Concomitant]
     Route: 065
     Dates: start: 20091119, end: 20091124
  4. MEFENAMIC ACID [Concomitant]
     Route: 065
     Dates: start: 20091123, end: 20091125
  5. VOLTAREN [Concomitant]
     Route: 065
     Dates: start: 20091124, end: 20091101
  6. RIVOTRIL [Concomitant]
     Route: 065
  7. BENZALIN [Concomitant]
     Route: 065
  8. GABAPEN [Concomitant]
     Route: 065
  9. TOPIRAMATE [Concomitant]
     Route: 065
  10. DEPAKENE [Concomitant]
     Route: 065
  11. ELECTROLYTES (UNSPECIFIED) [Concomitant]
     Route: 065
  12. SOLDEM 3A [Concomitant]
     Route: 065
  13. SODIUM CHLORIDE [Concomitant]
     Route: 065

REACTIONS (1)
  - CONVULSION [None]
